FAERS Safety Report 11058597 (Version 1)
Quarter: 2015Q2

REPORT INFORMATION
  Report Type: Report from Study
  Country: US (occurrence: None)
  Receive Date: 20150420
  Receipt Date: 20150420
  Transmission Date: 20150821
  Serious: No
  Sender: FDA-Public Use
  Company Number: AEGR001061

PATIENT
  Age: 64 Year
  Sex: Female
  Weight: 49.9 kg

DRUGS (6)
  1. CEFTIN (CEFUROXIME AXETIL) [Concomitant]
  2. FIORICET (BUTALBITAL, CAFFEINE, PARACETAMOL) [Concomitant]
  3. JUXTAPID [Suspect]
     Active Substance: LOMITAPIDE MESYLATE
     Indication: TYPE IIA HYPERLIPIDAEMIA
     Route: 048
     Dates: start: 20141212, end: 20141219
  4. TRAZODONE [Concomitant]
     Active Substance: TRAZODONE HYDROCHLORIDE
  5. LEXAPRO [Concomitant]
     Active Substance: ESCITALOPRAM OXALATE
  6. CRESTOR [Concomitant]
     Active Substance: ROSUVASTATIN CALCIUM

REACTIONS (3)
  - Diarrhoea [None]
  - Therapy cessation [None]
  - Upper respiratory tract infection [None]

NARRATIVE: CASE EVENT DATE: 201412
